FAERS Safety Report 7983974-1 (Version None)
Quarter: 2011Q4

REPORT INFORMATION
  Report Type: 
  Country: None (occurrence: None)
  Receive Date: 20111216
  Receipt Date: 20111208
  Transmission Date: 20120403
  Serious: No
  Sender: FDA-Public Use
  Company Number: US-BIOGENIDEC-2011BI046670

PATIENT
  Age: 50 Year
  Sex: Male

DRUGS (3)
  1. AVONEX [Suspect]
     Indication: MULTIPLE SCLEROSIS
     Route: 030
     Dates: start: 20090207
  2. AVONEX [Suspect]
     Route: 030
     Dates: end: 20050228
  3. AVONEX [Suspect]
     Route: 030
     Dates: start: 20060320

REACTIONS (2)
  - DEPRESSION [None]
  - ANXIETY [None]
